FAERS Safety Report 24620559 (Version 1)
Quarter: 2024Q4

REPORT INFORMATION
  Report Type: Spontaneous
  Country: IT (occurrence: IT)
  Receive Date: 20241114
  Receipt Date: 20241114
  Transmission Date: 20250115
  Serious: Yes (Hospitalization)
  Sender: LAVIPHARM
  Company Number: IT-Lavipharm SA-2165042

PATIENT
  Age: 40 Year
  Sex: Female

DRUGS (5)
  1. CLONIDINE [Suspect]
     Active Substance: CLONIDINE
  2. CHOLECALCIFEROL [Concomitant]
     Active Substance: CHOLECALCIFEROL
  3. PANTOPRAZOLE SODIUM [Concomitant]
     Active Substance: PANTOPRAZOLE SODIUM
  4. ENOXAPARIN [Concomitant]
     Active Substance: ENOXAPARIN
  5. Dobetin [Concomitant]

REACTIONS (2)
  - Hypertension [Unknown]
  - Drug ineffective [Unknown]

NARRATIVE: CASE EVENT DATE: 20241023
